FAERS Safety Report 6924849-6 (Version None)
Quarter: 2010Q3

REPORT INFORMATION
  Report Type: 
  Country: None (occurrence: None)
  Receive Date: 20100816
  Receipt Date: 20100805
  Transmission Date: 20110219
  Serious: Yes (Other)
  Sender: FDA-Public Use
  Company Number: CA-JNJFOC-20100802496

PATIENT
  Sex: Female
  Weight: 63.3 kg

DRUGS (11)
  1. REMICADE [Suspect]
     Indication: RHEUMATOID ARTHRITIS
     Route: 042
  2. REMICADE [Suspect]
     Route: 042
  3. HYDROCHLOROTHIAZIDE [Concomitant]
  4. DICLOFENAC SODIUM [Concomitant]
  5. FOLIC ACID [Concomitant]
  6. ACEBUTOLOL [Concomitant]
  7. OGEN [Concomitant]
  8. METHOTREXATE [Concomitant]
  9. SYNTHROID [Concomitant]
  10. PREDNISONE [Concomitant]
  11. CORTISONE ACETATE [Concomitant]

REACTIONS (1)
  - LIMB OPERATION [None]
